FAERS Safety Report 4532526-4 (Version None)
Quarter: 2004Q4

REPORT INFORMATION
  Report Type: 
  Country: None (occurrence: None)
  Receive Date: 20041206
  Receipt Date: 20041026
  Transmission Date: 20050328
  Serious: No
  Sender: FDA-Public Use
  Company Number: USA041082291

PATIENT
  Age: 75 Year
  Sex: Female

DRUGS (4)
  1. ALIMTA [Suspect]
     Indication: NON-SMALL CELL LUNG CANCER
     Dosage: 750 MG
     Dates: start: 20041018
  2. DECADRON [Concomitant]
  3. VITAMIN B-12 [Concomitant]
  4. FOLIC ACID [Concomitant]

REACTIONS (1)
  - RASH PAPULAR [None]
